FAERS Safety Report 8343786-6 (Version None)
Quarter: 2012Q2

REPORT INFORMATION
  Report Type: 
  Country: None (occurrence: None)
  Receive Date: 20120508
  Receipt Date: 20100907
  Transmission Date: 20120825
  Serious: Yes (Hospitalization, Other)
  Sender: FDA-Public Use
  Company Number: US-BAYER-201011967NA

PATIENT
  Age: 39 Year
  Sex: Female
  Weight: 97.727 kg

DRUGS (6)
  1. YASMIN [Suspect]
     Indication: PRODUCT USED FOR UNKNOWN INDICATION
     Route: 048
     Dates: start: 20060201, end: 20070118
  2. UNKNOWN DRUG [Concomitant]
     Indication: PAIN
     Route: 065
     Dates: start: 20091201, end: 20100101
  3. IBUPROFEN [Concomitant]
     Indication: PRODUCT USED FOR UNKNOWN INDICATION
  4. YAZ [Suspect]
     Indication: PRODUCT USED FOR UNKNOWN INDICATION
     Route: 048
     Dates: start: 20060201, end: 20070118
  5. FERROUS SULFATE TAB [Concomitant]
     Indication: IRON DEFICIENCY ANAEMIA
     Route: 048
     Dates: start: 20070101
  6. UNKNOWN DRUG [Concomitant]
     Indication: NASOPHARYNGITIS
     Route: 065
     Dates: start: 20091201, end: 20100101

REACTIONS (7)
  - DYSPNOEA [None]
  - PULMONARY EMBOLISM [None]
  - DEEP VEIN THROMBOSIS [None]
  - PAIN IN EXTREMITY [None]
  - CHEST PAIN [None]
  - WALKING DISTANCE TEST ABNORMAL [None]
  - ORTHOPNOEA [None]
